FAERS Safety Report 19803336 (Version 1)
Quarter: 2021Q3

REPORT INFORMATION
  Report Type: Report from Study
  Country: US (occurrence: US)
  Receive Date: 20210908
  Receipt Date: 20210908
  Transmission Date: 20211014
  Serious: Yes (Hospitalization)
  Sender: FDA-Public Use
  Company Number: US-SA-2020SA351369

PATIENT
  Age: 66 Year
  Sex: Male

DRUGS (1)
  1. DUPILUMAB [Suspect]
     Active Substance: DUPILUMAB
     Indication: ASTHMA

REACTIONS (6)
  - Cough [Unknown]
  - Dyspnoea [Unknown]
  - Asthma [Unknown]
  - Chest discomfort [Unknown]
  - Sleep disorder [Unknown]
  - Wheezing [Unknown]
